FAERS Safety Report 8555244-4 (Version None)
Quarter: 2012Q3

REPORT INFORMATION
  Report Type: 
  Country: None (occurrence: None)
  Receive Date: 20120731
  Receipt Date: 20110826
  Transmission Date: 20120928
  Serious: Yes (Hospitalization)
  Sender: FDA-Public Use
  Company Number: US-ASTRAZENECA-2011SE51436

PATIENT
  Sex: Male

DRUGS (1)
  1. SEROQUEL [Suspect]
     Indication: SLEEP DISORDER
     Dosage: UNKNOWN DOSE EVERY NIGHT
     Route: 048
     Dates: start: 20110201

REACTIONS (3)
  - OFF LABEL USE [None]
  - SYNCOPE [None]
  - HYPOTENSION [None]
